FAERS Safety Report 9199834 (Version 1)
Quarter: 2013Q1

REPORT INFORMATION
  Report Type: Spontaneous
  Country: FR (occurrence: FR)
  Receive Date: 20130329
  Receipt Date: 20130329
  Transmission Date: 20140127
  Serious: Yes (Other)
  Sender: FDA-Public Use
  Company Number: FR-GILEAD-2012-0059636

PATIENT
  Age: 28 Year
  Sex: Male

DRUGS (8)
  1. TRUVADA [Suspect]
     Indication: HIV INFECTION
     Dosage: 445 MG, UNK
     Route: 048
     Dates: start: 20120424, end: 20120503
  2. TRUVADA [Suspect]
     Dosage: UNK
     Route: 048
     Dates: start: 20120523
  3. NORVIR [Concomitant]
     Indication: HIV INFECTION
     Dosage: UNK
     Route: 048
     Dates: start: 20120424, end: 20120503
  4. NORVIR [Concomitant]
     Dosage: UNK
     Dates: start: 20120523
  5. PREZISTA [Concomitant]
     Indication: HIV INFECTION
     Dosage: 300 MG, UNK
     Route: 048
     Dates: start: 20120424, end: 20120503
  6. PREZISTA [Concomitant]
     Dosage: UNK
     Dates: start: 20120523
  7. EXTENCILLINE                       /00000904/ [Concomitant]
     Indication: SYPHILIS
     Dosage: 2.4 DF, UNK
     Dates: start: 20120419, end: 20120419
  8. EXTENCILLINE                       /00000904/ [Concomitant]
     Dosage: 2.4 DF, UNK
     Dates: start: 20120426, end: 20120426

REACTIONS (2)
  - Rash maculo-papular [Recovered/Resolved]
  - Pruritus [Recovered/Resolved]
